FAERS Safety Report 5154051-2 (Version None)
Quarter: 2006Q4

REPORT INFORMATION
  Report Type: 
  Country: None (occurrence: None)
  Receive Date: 20061116
  Receipt Date: 20061116
  Transmission Date: 20070319
  Serious: Yes (Other)
  Sender: FDA-Public Use
  Company Number: None

PATIENT
  Age: 75 Year
  Sex: Male

DRUGS (11)
  1. PROPYLTHIOURACIL 100MG TAB [Suspect]
     Indication: HYPERTHYROIDISM
     Dosage: 100 MG TID PO
     Route: 048
     Dates: start: 20050513, end: 20050523
  2. IOSORBIDE MONONITRATE [Concomitant]
  3. ZOCOR [Concomitant]
  4. BACTRIM DS [Concomitant]
  5. DIGOXIN [Concomitant]
  6. THALIDOMIDE [Concomitant]
  7. COUMADIN [Concomitant]
  8. FOLIC ACID [Concomitant]
  9. COREG [Concomitant]
  10. DEXAMETHASONE TAB [Concomitant]
  11. PROCRIT [Concomitant]

REACTIONS (2)
  - ANAEMIA [None]
  - NEUTROPENIA [None]
